FAERS Safety Report 8464492-3 (Version None)
Quarter: 2012Q2

REPORT INFORMATION
  Report Type: 
  Country: None (occurrence: None)
  Receive Date: 20120626
  Receipt Date: 20120614
  Transmission Date: 20120825
  Serious: Yes (Other)
  Sender: FDA-Public Use
  Company Number: CA-BRISTOL-MYERS SQUIBB COMPANY-16503963

PATIENT
  Age: 52 Year
  Sex: Female

DRUGS (7)
  1. ELAVIL [Concomitant]
  2. ORENCIA [Suspect]
     Indication: RHEUMATOID ARTHRITIS
     Dosage: NO OF INF:3 LAST ONF:08MAR12
     Route: 042
     Dates: start: 20120209
  3. CALCIUM + VITAMIN D [Concomitant]
  4. PREMARIN [Concomitant]
  5. PREDNISONE [Concomitant]
  6. TRAMADOL HYDROCHLORIDE/ACETAMINOPHEN [Concomitant]
  7. GABAPENTIN [Concomitant]

REACTIONS (2)
  - RENAL FAILURE [None]
  - URINARY TRACT INFECTION [None]
